FAERS Safety Report 16057224 (Version 2)
Quarter: 2019Q2

REPORT INFORMATION
  Report Type: Spontaneous
  Country: US (occurrence: US)
  Receive Date: 20190311
  Receipt Date: 20190419
  Transmission Date: 20190711
  Serious: No
  Sender: FDA-Public Use
  Company Number: US-PFIZER INC-2019098905

PATIENT
  Age: 60 Year
  Sex: Female
  Weight: 61 kg

DRUGS (1)
  1. DUAVEE [Suspect]
     Active Substance: BAZEDOXIFENE ACETATE\ESTROGENS, CONJUGATED
     Indication: OSTEOPOROSIS PROPHYLAXIS
     Dosage: UNK, 1X/DAY (IN THE MORNING)(ESTROGENS: 0.45 MG/BAZEDOXIFENE: 20 MG)

REACTIONS (2)
  - Drug ineffective [Unknown]
  - Bone density increased [Unknown]
